FAERS Safety Report 7087948-7 (Version None)
Quarter: 2010Q4

REPORT INFORMATION
  Report Type: 
  Country: None (occurrence: None)
  Receive Date: 20101108
  Receipt Date: 20101026
  Transmission Date: 20110411
  Serious: Yes (Other)
  Sender: FDA-Public Use
  Company Number: GB-US-EMD SERONO, INC.-7024439

PATIENT
  Sex: Female

DRUGS (5)
  1. REBIF [Suspect]
     Indication: MULTIPLE SCLEROSIS
     Route: 058
     Dates: start: 20090301, end: 20101012
  2. OLMESARTON [Concomitant]
     Indication: RENAL DISORDER
  3. AMITRIPTYLINE HCL [Concomitant]
     Indication: SENSORY DISTURBANCE
     Route: 048
  4. CITALOPRAM HYDROBROMIDE [Concomitant]
  5. BACLOFEN [Concomitant]
     Indication: MUSCLE SPASTICITY

REACTIONS (13)
  - BURNING SENSATION [None]
  - DIZZINESS [None]
  - DRY SKIN [None]
  - EPISTAXIS [None]
  - EXCORIATION [None]
  - FEELING HOT [None]
  - FLUID RETENTION [None]
  - HEADACHE [None]
  - HYPERHIDROSIS [None]
  - OEDEMA [None]
  - PRURITUS [None]
  - RASH [None]
  - RASH GENERALISED [None]
